FAERS Safety Report 9893563 (Version 2)
Quarter: 2014Q1

REPORT INFORMATION
  Report Type: Spontaneous
  Country: NP (occurrence: NP)
  Receive Date: 20140213
  Receipt Date: 20140310
  Transmission Date: 20141002
  Serious: Yes (Hospitalization)
  Sender: FDA-Public Use
  Company Number: NP-ELI_LILLY_AND_COMPANY-NP201402001793

PATIENT
  Age: 65 Year
  Sex: Male

DRUGS (3)
  1. GEMCITE [Suspect]
     Indication: NON-SMALL CELL LUNG CANCER
     Dosage: 1600 MG, DAY 1/8 EVERY 21 DAYS
     Route: 042
     Dates: start: 20140206
  2. CARBOPLATIN [Concomitant]
     Indication: NON-SMALL CELL LUNG CANCER
     Dosage: 400 MG, UNKNOWN
     Route: 042
     Dates: start: 20140206
  3. DEXONA                             /00016002/ [Concomitant]
     Indication: ABDOMINAL PAIN

REACTIONS (1)
  - Abdominal pain [Recovered/Resolved]
